FAERS Safety Report 9210639 (Version 1)
Quarter: 2013Q2

REPORT INFORMATION
  Report Type: Spontaneous
  Country: US (occurrence: US)
  Receive Date: 20130404
  Receipt Date: 20130404
  Transmission Date: 20140414
  Serious: No
  Sender: FDA-Public Use
  Company Number: US-PFIZER INC-2013102672

PATIENT
  Age: 9 Year
  Sex: Female
  Weight: 22.68 kg

DRUGS (2)
  1. GENOTROPIN [Suspect]
     Indication: GROWTH HORMONE DEFICIENCY
     Dosage: 1 MG, 1X/DAY
     Route: 058
  2. CLARITIN [Concomitant]
     Dosage: 5 MG, UNK

REACTIONS (1)
  - Injection site bruising [Unknown]
